FAERS Safety Report 7880268-X (Version None)
Quarter: 2011Q4

REPORT INFORMATION
  Report Type: 
  Country: None (occurrence: None)
  Receive Date: 20111101
  Receipt Date: 20111024
  Transmission Date: 20120403
  Serious: Yes (Hospitalization, Other)
  Sender: FDA-Public Use
  Company Number: US-PFIZER INC-2011259421

PATIENT
  Sex: Female

DRUGS (4)
  1. AZITHROMYCIN [Suspect]
     Indication: PNEUMONIA
     Dosage: UNK
     Dates: start: 20110711, end: 20110701
  2. AUGMENTIN [Concomitant]
     Indication: PNEUMONIA
     Dosage: 250-62.5MG/5ML, TWICE DAILY
     Route: 048
     Dates: start: 20110708, end: 20110713
  3. ZITHROMAX [Suspect]
     Indication: PNEUMONIA
     Dosage: UNK
     Dates: start: 20110701, end: 20110719
  4. TYLENOL-500 [Concomitant]
     Indication: PYREXIA
     Dosage: 200 MG, 1X/DAY
     Route: 048
     Dates: start: 20110707

REACTIONS (1)
  - STEVENS-JOHNSON SYNDROME [None]
